FAERS Safety Report 24633014 (Version 1)
Quarter: 2024Q4

REPORT INFORMATION
  Report Type: Spontaneous
  Country: US (occurrence: US)
  Receive Date: 20241118
  Receipt Date: 20241118
  Transmission Date: 20250115
  Serious: No
  Sender: PERRIGO
  Company Number: US-PERRIGO-24US009223

PATIENT
  Age: 21 Year
  Sex: Female
  Weight: 81.633 kg

DRUGS (3)
  1. OPILL [Suspect]
     Active Substance: NORGESTREL
     Indication: Contraception
     Dosage: 0.075 MG, QD
     Route: 048
     Dates: start: 202406, end: 202409
  2. OPILL [Suspect]
     Active Substance: NORGESTREL
     Dosage: 0.15 MG, SINGLE
     Route: 048
     Dates: start: 202409, end: 202409
  3. OPILL [Suspect]
     Active Substance: NORGESTREL
     Dosage: 0.075 MG, QD
     Route: 048
     Dates: start: 202409

REACTIONS (2)
  - Polymenorrhoea [Not Recovered/Not Resolved]
  - Product dose omission issue [Unknown]

NARRATIVE: CASE EVENT DATE: 20240601
